FAERS Safety Report 5149858-1 (Version None)
Quarter: 2006Q4

REPORT INFORMATION
  Report Type: 
  Country: None (occurrence: None)
  Receive Date: 20061113
  Receipt Date: 20061031
  Transmission Date: 20070319
  Serious: Yes (Hospitalization)
  Sender: FDA-Public Use
  Company Number: PHMT2006CA02070

PATIENT
  Age: 12 Year
  Sex: Male

DRUGS (2)
  1. RISPERIDONE [Suspect]
     Indication: EPILEPSY
     Dosage: 1 MG
     Dates: start: 20010101
  2. TEGRETOL [Suspect]
     Indication: EPILEPSY
     Dosage: 150 MG BID
     Route: 048
     Dates: start: 20060701

REACTIONS (1)
  - AGGRESSION [None]
